FAERS Safety Report 7753583-8 (Version None)
Quarter: 2011Q3

REPORT INFORMATION
  Report Type: 
  Country: None (occurrence: None)
  Receive Date: 20110915
  Receipt Date: 20110908
  Transmission Date: 20111222
  Serious: Yes (Hospitalization)
  Sender: FDA-Public Use
  Company Number: US-GLAXOSMITHKLINE-A0896800A

PATIENT
  Age: 61 Year
  Sex: Female

DRUGS (1)
  1. AVANDIA [Suspect]
     Indication: TYPE 2 DIABETES MELLITUS
     Dosage: 4MG TWICE PER DAY
     Route: 048
     Dates: start: 20000701, end: 20070701

REACTIONS (10)
  - TRANSIENT ISCHAEMIC ATTACK [None]
  - HYPERTROPHY [None]
  - CEREBROVASCULAR ACCIDENT [None]
  - HYPERLIPIDAEMIA [None]
  - AORTIC STENOSIS [None]
  - COAGULOPATHY [None]
  - PULMONARY HYPERTENSION [None]
  - HEART VALVE INCOMPETENCE [None]
  - CORONARY ARTERY DISEASE [None]
  - ARTERIOSCLEROSIS [None]
